FAERS Safety Report 11073056 (Version 1)
Quarter: 2015Q2

REPORT INFORMATION
  Report Type: Spontaneous
  Country: US (occurrence: US)
  Receive Date: 20150428
  Receipt Date: 20150428
  Transmission Date: 20150821
  Serious: No
  Sender: FDA-Public Use
  Company Number: US-MYLANLABS-2014S1007285

PATIENT
  Sex: Female

DRUGS (3)
  1. LORAZEPAM TABLETS, USP [Suspect]
     Active Substance: LORAZEPAM
     Indication: ANXIETY
  2. VAGIFEN [Concomitant]
     Dosage: UNK
  3. LORAZEPAM TABLETS, USP [Suspect]
     Active Substance: LORAZEPAM
     Indication: PANIC ATTACK
     Dosage: 1 MG,BID
     Route: 048
     Dates: start: 201402, end: 201403

REACTIONS (1)
  - Dyspepsia [Recovered/Resolved]

NARRATIVE: CASE EVENT DATE: 201402
